FAERS Safety Report 6169969-1 (Version None)
Quarter: 2009Q2

REPORT INFORMATION
  Report Type: 
  Country: None (occurrence: None)
  Receive Date: 20090428
  Receipt Date: 20090420
  Transmission Date: 20091009
  Serious: Yes (Other)
  Sender: FDA-Public Use
  Company Number: GB-JNJFOC-20080906543

PATIENT
  Sex: Female
  Weight: 85 kg

DRUGS (7)
  1. REMICADE [Suspect]
     Route: 042
  2. REMICADE [Suspect]
     Indication: RHEUMATOID ARTHRITIS
     Route: 042
  3. METHOTREXATE [Concomitant]
  4. PREDNISOLONE [Concomitant]
  5. AMLODIPINE [Concomitant]
  6. FOLIC ACID [Concomitant]
  7. HYDROXYCHLOROQUINE SULFATE [Concomitant]

REACTIONS (1)
  - CHRONIC MYELOID LEUKAEMIA [None]
